FAERS Safety Report 18087678 (Version 2)
Quarter: 2020Q4

REPORT INFORMATION
  Report Type: Spontaneous
  Country: US (occurrence: US)
  Receive Date: 20200729
  Receipt Date: 20201009
  Transmission Date: 20210113
  Serious: No
  Sender: FDA-Public Use
  Company Number: US-GILEAD-2020-0486660

PATIENT

DRUGS (9)
  1. NIMBEX [NIMESULIDE] [Concomitant]
     Active Substance: NIMESULIDE
     Dosage: UNK
     Route: 064
     Dates: start: 20200717, end: 20200718
  2. FENTANYL. [Concomitant]
     Active Substance: FENTANYL
     Dosage: UNK
     Route: 064
     Dates: start: 20200713, end: 20200716
  3. PRECEDEX [Concomitant]
     Active Substance: DEXMEDETOMIDINE HYDROCHLORIDE
     Dosage: UNK
     Route: 064
     Dates: start: 20200712
  4. REMDESIVIR. [Suspect]
     Active Substance: REMDESIVIR
     Indication: COVID-19
     Dosage: UNK
     Route: 064
     Dates: start: 20200712, end: 20200716
  5. CEFTRIAXONE. [Concomitant]
     Active Substance: CEFTRIAXONE
     Dosage: UNK
     Route: 064
     Dates: start: 20200711, end: 20200716
  6. HEPARIN [Concomitant]
     Active Substance: HEPARIN SODIUM
     Dosage: DRIP
     Route: 064
     Dates: start: 20200718, end: 20200721
  7. LOVENOX [LEVOFLOXACIN] [Concomitant]
     Active Substance: LEVOFLOXACIN
     Dosage: UNK
     Route: 064
     Dates: start: 20200711, end: 20200718
  8. DEXAMETHASONE. [Concomitant]
     Active Substance: DEXAMETHASONE
     Dosage: UNK
     Route: 064
     Dates: start: 20200711, end: 20200721
  9. LEVOPHED [Concomitant]
     Active Substance: NOREPINEPHRINE BITARTRATE
     Dosage: UNK
     Route: 064
     Dates: start: 20200713

REACTIONS (1)
  - Foetal exposure during pregnancy [Recovered/Resolved]

NARRATIVE: CASE EVENT DATE: 20200712
